FAERS Safety Report 7670943-4 (Version None)
Quarter: 2011Q3

REPORT INFORMATION
  Report Type: 
  Country: None (occurrence: None)
  Receive Date: 20110809
  Receipt Date: 20110803
  Transmission Date: 20111222
  Serious: No
  Sender: FDA-Public Use
  Company Number: US-PFIZER INC-2011178618

PATIENT

DRUGS (1)
  1. TOVIAZ [Suspect]
     Indication: BLADDER DISORDER
     Dosage: 8 MG, UNK

REACTIONS (1)
  - DRUG EFFECT DECREASED [None]
